FAERS Safety Report 5313181-2 (Version None)
Quarter: 2007Q2

REPORT INFORMATION
  Report Type: 
  Country: None (occurrence: None)
  Receive Date: 20070424
  Receipt Date: 20070419
  Transmission Date: 20071010
  Serious: Yes (Life-Threatening)
  Sender: FDA-Public Use
  Company Number: 2007-156722-NL

PATIENT
  Age: 51 Year
  Sex: Female

DRUGS (6)
  1. VECURONIUM BROMIDE [Suspect]
     Indication: INDUCTION OF ANAESTHESIA
     Dosage: 6 MG ONCE INTRAVENOUS (NOS)
     Route: 042
     Dates: start: 20070326, end: 20070326
  2. PROPOFOL [Suspect]
     Indication: INDUCTION OF ANAESTHESIA
     Dosage: 120 MG ONCE INTRAVENOUS (NOS)
     Route: 042
     Dates: start: 20070326, end: 20070326
  3. PENTAZOCINE LACTATE [Suspect]
     Indication: INDUCTION OF ANAESTHESIA
     Dosage: 15 MG INTRAVENOUS (NOS)
     Route: 042
     Dates: start: 20070326, end: 20070326
  4. CEFAZOLIN SODIUM [Suspect]
     Indication: INFECTION PROPHYLAXIS
     Dosage: 1 G INTRAVENOUS (NOS)
     Route: 042
     Dates: start: 20070326, end: 20070326
  5. ATROPINE [Concomitant]
  6. SEVOFLURANE [Concomitant]

REACTIONS (1)
  - LARYNGEAL OEDEMA [None]
